FAERS Safety Report 22178032 (Version 1)
Quarter: 2023Q2

REPORT INFORMATION
  Report Type: Spontaneous
  Country: CN (occurrence: CN)
  Receive Date: 20230405
  Receipt Date: 20230405
  Transmission Date: 20230722
  Serious: Yes (Hospitalization)
  Sender: FDA-Public Use
  Company Number: CN-PFIZER INC-PV202300062150

PATIENT
  Age: 32 Year
  Sex: Female
  Weight: 80 kg

DRUGS (7)
  1. MEROPENEM [Interacting]
     Active Substance: MEROPENEM
     Indication: Infection
     Dosage: 1G[TID];
     Route: 041
     Dates: start: 20230221, end: 20230227
  2. VALPROATE SODIUM [Interacting]
     Active Substance: VALPROATE SODIUM
     Indication: Epilepsy
     Dosage: 12 ML[TID] (GASTRIC TUBE INFLUX)
     Route: 048
     Dates: start: 20230209, end: 20230222
  3. VALPROATE SODIUM [Interacting]
     Active Substance: VALPROATE SODIUM
     Dosage: 12 ML[TID] (GASTRIC TUBE INFLUX)
     Route: 048
     Dates: start: 20230301, end: 20230305
  4. PHENOBARBITAL SODIUM [Suspect]
     Active Substance: PHENOBARBITAL SODIUM
     Indication: Epilepsy
     Dosage: 0.1 G[TID] (INTRAMUSCULAR INJECTION)
     Route: 030
     Dates: start: 20230203, end: 202302
  5. PHENOBARBITAL SODIUM [Suspect]
     Active Substance: PHENOBARBITAL SODIUM
     Dosage: 0.1 G, 2X/DAY
     Route: 030
     Dates: start: 20230213, end: 20230216
  6. PHENOBARBITAL SODIUM [Suspect]
     Active Substance: PHENOBARBITAL SODIUM
     Dosage: 0.1 G, 2X/DAY
     Route: 030
     Dates: start: 20230222, end: 20230305
  7. VALPROATE SODIUM [Concomitant]
     Active Substance: VALPROATE SODIUM
     Dosage: 6 ML/H
     Dates: start: 20230203

REACTIONS (2)
  - Drug eruption [Recovering/Resolving]
  - Drug interaction [Unknown]

NARRATIVE: CASE EVENT DATE: 20230222
